FAERS Safety Report 9387928 (Version 2)
Quarter: 2013Q3

REPORT INFORMATION
  Report Type: Spontaneous
  Country: US (occurrence: US)
  Receive Date: 20130708
  Receipt Date: 20130815
  Transmission Date: 20140515
  Serious: Yes (Hospitalization)
  Sender: FDA-Public Use
  Company Number: US-009507513-1307USA002008

PATIENT
  Sex: 0

DRUGS (1)
  1. VICTRELIS [Suspect]
     Indication: HEPATITIS C
     Route: 048

REACTIONS (2)
  - Pneumonia [Unknown]
  - Drug dose omission [Unknown]
